FAERS Safety Report 9934799 (Version 1)
Quarter: 2014Q1

REPORT INFORMATION
  Report Type: Spontaneous
  Country: IE (occurrence: IE)
  Receive Date: 20140228
  Receipt Date: 20140228
  Transmission Date: 20141002
  Serious: Yes (Other)
  Sender: FDA-Public Use
  Company Number: IE-AMGEN-IRLSP2014013243

PATIENT
  Age: 67 Year
  Sex: Female

DRUGS (6)
  1. PROLIA [Suspect]
     Indication: OSTEOPOROSIS
     Dosage: UNK UNK, Q6MO
     Route: 058
  2. PROLIA [Suspect]
     Dosage: UNK, Q6MO
     Route: 058
  3. CALCICHEW [Concomitant]
     Indication: OSTEOPOROSIS
     Dosage: UNK UNK, QD 2
     Route: 048
  4. LAXOSE [Concomitant]
     Indication: CONSTIPATION
     Dosage: UNK UNK, QD
  5. BECLAZONE [Concomitant]
     Dosage: UNK CFC- FREE INHALER
     Route: 055
  6. EZETROL [Concomitant]
     Indication: BLOOD CHOLESTEROL
     Dosage: UNK UNK, QD
     Route: 048

REACTIONS (6)
  - Haematuria [Recovering/Resolving]
  - Nausea [Recovering/Resolving]
  - Dizziness [Recovering/Resolving]
  - Paraesthesia [Recovering/Resolving]
  - Fatigue [Recovering/Resolving]
  - Sciatica [Recovering/Resolving]
